FAERS Safety Report 4856248-5 (Version None)
Quarter: 2005Q4

REPORT INFORMATION
  Report Type: 
  Country: None (occurrence: None)
  Receive Date: 20051215
  Receipt Date: 20051117
  Transmission Date: 20060501
  Serious: Yes (Life-Threatening, Hospitalization, Other)
  Sender: FDA-Public Use
  Company Number: MAG-2005-0000392

PATIENT
  Age: 28 Year
  Sex: Female

DRUGS (4)
  1. THEOPHYLLINE [Suspect]
     Indication: SUICIDE ATTEMPT
     Dosage: 84  TABLET , SINGLE, ORAL
     Route: 048
     Dates: start: 20050424, end: 20050424
  2. PRANLUKAST (PRANLUKAST) [Concomitant]
  3. ASPIRIN/DIALUMINATE [Concomitant]
  4. MAINTENANCE MEDIUM [Concomitant]

REACTIONS (28)
  - BLOOD CALCIUM DECREASED [None]
  - BLOOD CHLORIDE DECREASED [None]
  - BLOOD PHOSPHORUS DECREASED [None]
  - BLOOD POTASSIUM DECREASED [None]
  - CARDIOVASCULAR DISORDER [None]
  - CENTRAL NERVOUS SYSTEM STIMULATION [None]
  - CENTRAL VENOUS PRESSURE DECREASED [None]
  - DEPRESSED LEVEL OF CONSCIOUSNESS [None]
  - DRUG TOXICITY [None]
  - ELECTROLYTE IMBALANCE [None]
  - EXCITABILITY [None]
  - HAEMODIALYSIS [None]
  - HYPERGLYCAEMIA [None]
  - HYPERVENTILATION [None]
  - HYPOSTHENURIA [None]
  - HYPOTENSION [None]
  - HYPOVOLAEMIC SHOCK [None]
  - MULTIPLE DRUG OVERDOSE [None]
  - NAUSEA [None]
  - POLYURIA [None]
  - RESPIRATORY ALKALOSIS [None]
  - RESTLESSNESS [None]
  - SHOCK [None]
  - SINUS TACHYCARDIA [None]
  - SUICIDE ATTEMPT [None]
  - TREMOR [None]
  - VENTRICULAR EXTRASYSTOLES [None]
  - VENTRICULAR TACHYCARDIA [None]
